FAERS Safety Report 12922389 (Version 1)
Quarter: 2016Q4

REPORT INFORMATION
  Report Type: Spontaneous
  Country: JP (occurrence: JP)
  Receive Date: 20161108
  Receipt Date: 20161108
  Transmission Date: 20170207
  Serious: Yes (Death, Hospitalization, Other)
  Sender: FDA-Public Use
  Company Number: JP-BRISTOL-MYERS SQUIBB COMPANY-BMS-2016-020432

PATIENT
  Age: 77 Year
  Sex: Male
  Weight: 55 kg

DRUGS (8)
  1. AVOLVE [Concomitant]
     Active Substance: DUTASTERIDE
     Indication: BENIGN PROSTATIC HYPERPLASIA
     Dosage: 0.5 MG, UNK
     Route: 048
     Dates: start: 20150214, end: 20160910
  2. MECOBALAMIN [Concomitant]
     Active Substance: METHYLCOBALAMIN
     Indication: NEUROPATHY PERIPHERAL
     Dosage: 1.5 MG, TID
     Route: 048
     Dates: start: 20150214, end: 20160910
  3. URIEF [Concomitant]
     Active Substance: SILODOSIN
     Indication: BENIGN PROSTATIC HYPERPLASIA
     Dosage: 8 MG, BID
     Route: 048
     Dates: start: 20150214, end: 20160910
  4. LANDSEN [Concomitant]
     Active Substance: CLONAZEPAM
     Indication: MYOCLONUS
     Dosage: 1 MG, BID
     Route: 048
     Dates: start: 20160311, end: 20160910
  5. ELIQUIS [Suspect]
     Active Substance: APIXABAN
     Indication: CEREBROVASCULAR ACCIDENT PROPHYLAXIS
     Dosage: 2.5 MG, BID
     Route: 048
     Dates: start: 20150218, end: 201603
  6. ELIQUIS [Suspect]
     Active Substance: APIXABAN
     Indication: PRODUCT USED FOR UNKNOWN INDICATION
     Dosage: 5 MG, BID
     Route: 048
     Dates: start: 20160318, end: 20160910
  7. IRBETAN [Concomitant]
     Active Substance: IRBESARTAN
     Indication: PRODUCT USED FOR UNKNOWN INDICATION
     Route: 048
  8. HARNAL [Concomitant]
     Active Substance: TAMSULOSIN HYDROCHLORIDE
     Indication: PRODUCT USED FOR UNKNOWN INDICATION
     Route: 048

REACTIONS (5)
  - Brain stem haemorrhage [Fatal]
  - Embolic stroke [Recovering/Resolving]
  - Inguinal hernia repair [Unknown]
  - Inguinal hernia [Unknown]
  - Myoclonus [Unknown]

NARRATIVE: CASE EVENT DATE: 20160311
